FAERS Safety Report 9971750 (Version 1)
Quarter: 2014Q1

REPORT INFORMATION
  Report Type: Spontaneous
  Country: US (occurrence: US)
  Receive Date: 20140306
  Receipt Date: 20140306
  Transmission Date: 20141002
  Serious: No
  Sender: FDA-Public Use
  Company Number: US-ABBVIE-13P-163-1153565-00

PATIENT
  Age: 75 Year
  Sex: Female
  Weight: 81.72 kg

DRUGS (14)
  1. HUMIRA [Suspect]
     Indication: RHEUMATOID ARTHRITIS
     Route: 058
     Dates: start: 20130807
  2. PREDNISONE [Concomitant]
     Indication: RHEUMATOID ARTHRITIS
  3. ZOLOFT [Concomitant]
     Indication: DEPRESSION
  4. NEXIUM [Concomitant]
     Indication: GASTROOESOPHAGEAL REFLUX DISEASE
  5. CELEBREX [Concomitant]
     Indication: RHEUMATOID ARTHRITIS
  6. HYDROCHLOROTHIAZIDE [Concomitant]
     Indication: FLUID RETENTION
  7. POTASSIUM [Concomitant]
     Indication: VITAMIN SUPPLEMENTATION
  8. MAGNESIUM [Concomitant]
     Indication: VITAMIN SUPPLEMENTATION
  9. OSACOL D [Concomitant]
     Indication: VITAMIN SUPPLEMENTATION
  10. VITAMIN D NOS [Concomitant]
     Indication: VITAMIN SUPPLEMENTATION
  11. VITAMIN B 12 [Concomitant]
     Indication: VITAMIN SUPPLEMENTATION
  12. VITAMIN D3 [Concomitant]
     Indication: VITAMIN SUPPLEMENTATION
  13. BIOTIN [Concomitant]
     Indication: VITAMIN SUPPLEMENTATION
  14. UNKNOWN [Concomitant]
     Indication: CONSTIPATION PROPHYLAXIS
     Dosage: OTC

REACTIONS (1)
  - Injection site pain [Not Recovered/Not Resolved]
